FAERS Safety Report 21610168 (Version 3)
Quarter: 2022Q4

REPORT INFORMATION
  Report Type: Spontaneous
  Country: US (occurrence: US)
  Receive Date: 20221117
  Receipt Date: 20221214
  Transmission Date: 20230112
  Serious: Yes (Other)
  Sender: FDA-Public Use
  Company Number: US-UNITED THERAPEUTICS-UNT-2022-025235

PATIENT
  Sex: Female

DRUGS (4)
  1. REMODULIN [Suspect]
     Active Substance: TREPROSTINIL
     Indication: Pulmonary arterial hypertension
     Dosage: 0.006 ?G/KG, CONTINUING
     Route: 041
     Dates: start: 20221017
  2. REMODULIN [Suspect]
     Active Substance: TREPROSTINIL
     Dosage: 0.010 ?G/KG, CONTINUING
     Route: 041
     Dates: start: 202210
  3. REMODULIN [Suspect]
     Active Substance: TREPROSTINIL
     Dosage: 0.022 ?G/KG, CONTINUING
     Route: 041
     Dates: start: 2022
  4. REMODULIN [Suspect]
     Active Substance: TREPROSTINIL
     Dosage: 0.024 ?G/KG, CONTINUING
     Route: 041
     Dates: start: 2022

REACTIONS (12)
  - Systemic lupus erythematosus [Unknown]
  - Neuropathy peripheral [Unknown]
  - Nausea [Unknown]
  - Dyspepsia [Unknown]
  - Pain in jaw [Unknown]
  - Abdominal discomfort [Unknown]
  - Arthralgia [Unknown]
  - Pain in extremity [Unknown]
  - Myalgia [Unknown]
  - Diarrhoea [Unknown]
  - Influenza like illness [Unknown]
  - Arthritis [Unknown]

NARRATIVE: CASE EVENT DATE: 20220101
